FAERS Safety Report 4893756-5 (Version None)
Quarter: 2005Q4

REPORT INFORMATION
  Report Type: 
  Country: None (occurrence: None)
  Receive Date: 20051223
  Receipt Date: 20051114
  Transmission Date: 20060501
  Serious: No
  Sender: FDA-Public Use
  Company Number: 2005PV004400

PATIENT
  Age: 63 Year
  Sex: Male
  Weight: 117.9352 kg

DRUGS (5)
  1. SYMLIN [Suspect]
     Indication: DIABETES MELLITUS NON-INSULIN-DEPENDENT
     Dosage: 60 MCG; TID; SC
     Route: 058
     Dates: start: 20051106
  2. LOPID [Suspect]
     Indication: BLOOD TRIGLYCERIDES
     Dates: start: 20051106
  3. LANTUS [Concomitant]
  4. HUMALOG [Concomitant]
  5. LIPITOR [Concomitant]

REACTIONS (3)
  - DECREASED APPETITE [None]
  - NAUSEA [None]
  - PAIN [None]
